FAERS Safety Report 13387577 (Version 11)
Quarter: 2017Q3

REPORT INFORMATION
  Report Type: Spontaneous
  Country: KR (occurrence: KR)
  Receive Date: 20170330
  Receipt Date: 20170824
  Transmission Date: 20171127
  Serious: Yes (Other)
  Sender: FDA-Public Use
  Company Number: KR-009507513-1703KOR013386

PATIENT
  Age: 42 Year
  Sex: Female
  Weight: 80.7 kg

DRUGS (79)
  1. ENDOXAN [Concomitant]
     Active Substance: CYCLOPHOSPHAMIDE
     Indication: CHEMOTHERAPY
     Dosage: 915 MG, ONCE, CYCLE 1
     Route: 042
     Dates: start: 20170116, end: 20170116
  2. FLUOROURACIL. [Concomitant]
     Active Substance: FLUOROURACIL
     Dosage: 920 MG, ONCE, CYCLE 2, STRENGTH: 1000 MG/20ML
     Route: 042
     Dates: start: 20170209, end: 20170209
  3. DEXAMETHASONE. [Concomitant]
     Active Substance: DEXAMETHASONE
     Indication: PROPHYLAXIS OF NAUSEA AND VOMITING
     Dosage: 6 MG, BID
     Route: 048
     Dates: start: 20170116, end: 20170116
  4. DEXAMETHASONE. [Concomitant]
     Active Substance: DEXAMETHASONE
     Dosage: 6 MG, BID
     Route: 048
     Dates: start: 20170413, end: 20170413
  5. DEXAMETHASONE. [Concomitant]
     Active Substance: DEXAMETHASONE
     Dosage: 6 MG, BID
     Route: 048
     Dates: start: 20170504, end: 20170504
  6. ALOXI [Concomitant]
     Active Substance: PALONOSETRON HYDROCHLORIDE
     Dosage: 0.25 MG, ONCE
     Route: 042
     Dates: start: 20170413, end: 20170413
  7. NASEA [Concomitant]
     Active Substance: RAMOSETRON HYDROCHLORIDE
     Dosage: 0.1 MG, ONCE
     Route: 048
     Dates: start: 20170417, end: 20170417
  8. CARDIOXANE [Concomitant]
     Active Substance: DEXRAZOXANE HYDROCHLORIDE
     Dosage: 1000 MG, ONCE
     Route: 042
     Dates: start: 20170323, end: 20170323
  9. NEUTROGIN [Concomitant]
     Active Substance: LENOGRASTIM
     Dosage: 250 MICROGRAM, QD
     Route: 058
     Dates: start: 20170515, end: 20170516
  10. EMEND (FOSAPREPITANT DIMEGLUMINE) [Suspect]
     Active Substance: FOSAPREPITANT DIMEGLUMINE
     Dosage: 150 MG, ONCE
     Route: 042
     Dates: start: 20170323, end: 20170323
  11. ENDOXAN [Concomitant]
     Active Substance: CYCLOPHOSPHAMIDE
     Dosage: 915 MG, ONCE, CYCLE 6
     Route: 042
     Dates: start: 20170504, end: 20170504
  12. FLUOROURACIL. [Concomitant]
     Active Substance: FLUOROURACIL
     Dosage: 920 MG, ONCE, CYCLE 5, STRENGTH: 1000 MG/20ML
     Route: 042
     Dates: start: 20170413, end: 20170413
  13. DEXAMETHASONE. [Concomitant]
     Active Substance: DEXAMETHASONE
     Dosage: 6 MG, BID
     Route: 048
     Dates: start: 20170206, end: 20170206
  14. DEXAMETHASONE. [Concomitant]
     Active Substance: DEXAMETHASONE
     Dosage: 4 MG, BID
     Route: 048
     Dates: start: 20170324, end: 20170326
  15. SANCUSO [Concomitant]
     Active Substance: GRANISETRON
     Dosage: 34.3 MG, ONCE, STRENGTH: 80.2X66.6 MM2
     Route: 062
     Dates: start: 20170412, end: 20170412
  16. SANCUSO [Concomitant]
     Active Substance: GRANISETRON
     Dosage: 34.3 MG, ONCE, STRENGTH: 80.2X66.6 MM2
     Route: 062
     Dates: start: 20170503, end: 20170503
  17. NASEA [Concomitant]
     Active Substance: RAMOSETRON HYDROCHLORIDE
     Indication: PROPHYLAXIS OF NAUSEA AND VOMITING
     Dosage: 0.1 MG, ONCE
     Route: 048
     Dates: start: 20170120, end: 20170120
  18. NASEA [Concomitant]
     Active Substance: RAMOSETRON HYDROCHLORIDE
     Dosage: 0.1 MG, ONCE
     Route: 048
     Dates: start: 20170303, end: 20170303
  19. CARDIOXANE [Concomitant]
     Active Substance: DEXRAZOXANE HYDROCHLORIDE
     Dosage: 1000 MG, ONCE
     Route: 042
     Dates: start: 20170206, end: 20170206
  20. CARDIOXANE [Concomitant]
     Active Substance: DEXRAZOXANE HYDROCHLORIDE
     Dosage: 1000 MG, ONCE
     Route: 042
     Dates: start: 20170413, end: 20170413
  21. STOGAR [Concomitant]
     Active Substance: LAFUTIDINE
     Indication: PROPHYLAXIS
     Dosage: 10 MG, BID
     Route: 048
     Dates: start: 20170116
  22. EMEND (FOSAPREPITANT DIMEGLUMINE) [Suspect]
     Active Substance: FOSAPREPITANT DIMEGLUMINE
     Indication: PROPHYLAXIS OF NAUSEA AND VOMITING
     Dosage: 150 MG, ONCE
     Route: 042
     Dates: start: 20170116, end: 20170116
  23. EMEND (FOSAPREPITANT DIMEGLUMINE) [Suspect]
     Active Substance: FOSAPREPITANT DIMEGLUMINE
     Dosage: 150 MG, ONCE
     Route: 042
     Dates: start: 20170206, end: 20170206
  24. ENDOXAN [Concomitant]
     Active Substance: CYCLOPHOSPHAMIDE
     Dosage: 915 MG, ONCE, CYCLE 4
     Route: 042
     Dates: start: 20170323, end: 20170323
  25. FLUOROURACIL. [Concomitant]
     Active Substance: FLUOROURACIL
     Indication: CHEMOTHERAPY
     Dosage: 920 MG, ONCE, CYCLE 1, STRENGTH: 1000 MG/20ML
     Route: 042
     Dates: start: 20170116, end: 20170116
  26. FLUOROURACIL. [Concomitant]
     Active Substance: FLUOROURACIL
     Dosage: 920 MG, ONCE, CYCLE 1, STRENGTH: 1000 MG/20ML
     Route: 042
     Dates: start: 20170119, end: 20170119
  27. FLUOROURACIL. [Concomitant]
     Active Substance: FLUOROURACIL
     Dosage: 920 MG, ONCE, CYCLE 2, STRENGTH: 1000 MG/20ML
     Route: 042
     Dates: start: 20170206, end: 20170206
  28. FLUOROURACIL. [Concomitant]
     Active Substance: FLUOROURACIL
     Dosage: 920 MG, ONCE, CYCLE 3, STRENGTH: 1000 MG/20ML
     Route: 042
     Dates: start: 20170227, end: 20170227
  29. FLUOROURACIL. [Concomitant]
     Active Substance: FLUOROURACIL
     Dosage: 920 MG, ONCE, CYCLE 5, STRENGTH: 1000 MG/20ML
     Route: 042
     Dates: start: 20170416, end: 20170416
  30. FLUOROURACIL. [Concomitant]
     Active Substance: FLUOROURACIL
     Dosage: 920 MG, ONCE, CYCLE 6, STRENGTH: 1000 MG/20ML
     Route: 042
     Dates: start: 20170504, end: 20170504
  31. DEXAMETHASONE. [Concomitant]
     Active Substance: DEXAMETHASONE
     Dosage: 4 MG, BID
     Route: 048
     Dates: start: 20170414, end: 20170416
  32. NASEA [Concomitant]
     Active Substance: RAMOSETRON HYDROCHLORIDE
     Dosage: 0.1 MG, ONCE
     Route: 048
     Dates: start: 20170327, end: 20170327
  33. NEUTROGIN [Concomitant]
     Active Substance: LENOGRASTIM
     Dosage: 250 MICROGRAM, ONCE
     Route: 058
     Dates: start: 20170327, end: 20170327
  34. EMEND (FOSAPREPITANT DIMEGLUMINE) [Suspect]
     Active Substance: FOSAPREPITANT DIMEGLUMINE
     Dosage: 150 MG, ONCE
     Route: 042
     Dates: start: 20170227, end: 20170227
  35. ENDOXAN [Concomitant]
     Active Substance: CYCLOPHOSPHAMIDE
     Dosage: 915 MG, ONCE, CYCLE 5
     Route: 042
     Dates: start: 20170413, end: 20170413
  36. FLUOROURACIL. [Concomitant]
     Active Substance: FLUOROURACIL
     Dosage: 920 MG, ONCE, CYCLE 6, STRENGTH: 1000 MG/20ML
     Route: 042
     Dates: start: 20170507, end: 20170507
  37. DEXAMETHASONE. [Concomitant]
     Active Substance: DEXAMETHASONE
     Dosage: 4 MG, BID
     Route: 048
     Dates: start: 20170117, end: 20170119
  38. DEXAMETHASONE. [Concomitant]
     Active Substance: DEXAMETHASONE
     Dosage: 6 MG, BID
     Route: 048
     Dates: start: 20170227, end: 20170227
  39. DEXAMETHASONE. [Concomitant]
     Active Substance: DEXAMETHASONE
     Dosage: 4 MG, BID
     Route: 048
     Dates: start: 20170228, end: 20170302
  40. SANCUSO [Concomitant]
     Active Substance: GRANISETRON
     Indication: PROPHYLAXIS OF NAUSEA AND VOMITING
     Dosage: 34.3 MG, ONCE, STRENGTH: 80.2X66.6 MM2
     Route: 062
     Dates: start: 20170115, end: 20170115
  41. SANCUSO [Concomitant]
     Active Substance: GRANISETRON
     Dosage: 34.3 MG,ONCE, STRENGTH: 80.2X66.6 MM2
     Route: 062
     Dates: start: 20170226, end: 20170226
  42. NEUTROGIN [Concomitant]
     Active Substance: LENOGRASTIM
     Dosage: 250 MICROGRAM, ONCE
     Route: 058
     Dates: start: 20170210, end: 20170210
  43. NEUTROGIN [Concomitant]
     Active Substance: LENOGRASTIM
     Dosage: 250 MICROGRAM, ONCE
     Route: 058
     Dates: start: 20170216, end: 20170216
  44. DICAMAX D [Concomitant]
     Indication: VITAMIN SUPPLEMENTATION
     Dosage: 1 TABLET, QD
     Route: 048
     Dates: start: 20161226
  45. EPIRUBICIN HYDROCHLORIDE. [Concomitant]
     Active Substance: EPIRUBICIN HYDROCHLORIDE
     Dosage: 128 MG, ONCE, CYCLE 4, STRENGTH: 10 MG/10ML
     Route: 042
     Dates: start: 20170323, end: 20170323
  46. NASEA [Concomitant]
     Active Substance: RAMOSETRON HYDROCHLORIDE
     Dosage: 0.1 MG, ONCE
     Route: 048
     Dates: start: 20170508, end: 20170508
  47. NEUTROGIN [Concomitant]
     Active Substance: LENOGRASTIM
     Dosage: 250 MICROGRAM, ONCE
     Route: 058
     Dates: start: 20170131, end: 20170131
  48. NEUTROGIN [Concomitant]
     Active Substance: LENOGRASTIM
     Dosage: 250 MICROGRAM, ONCE
     Route: 058
     Dates: start: 20170309, end: 20170310
  49. NEUTROGIN [Concomitant]
     Active Substance: LENOGRASTIM
     Dosage: 250 MICROGRAM, ONCE
     Route: 058
     Dates: start: 20170417, end: 20170417
  50. EPIRUBICIN HYDROCHLORIDE. [Concomitant]
     Active Substance: EPIRUBICIN HYDROCHLORIDE
     Dosage: 128 MG, ONCE, CYCLE 2, STRENGTH: 10 MG/10ML
     Route: 042
     Dates: start: 20170206, end: 20170206
  51. EPIRUBICIN HYDROCHLORIDE. [Concomitant]
     Active Substance: EPIRUBICIN HYDROCHLORIDE
     Dosage: 128 MG, ONCE, CYCLE 3, STRENGTH: 10 MG/10ML
     Route: 042
     Dates: start: 20170227, end: 20170227
  52. EPIRUBICIN HYDROCHLORIDE. [Concomitant]
     Active Substance: EPIRUBICIN HYDROCHLORIDE
     Dosage: 128.1 MG, ONCE, CYCLE 6, STRENGTH: 10 MG/5ML
     Route: 042
     Dates: start: 20170504, end: 20170504
  53. FLUOROURACIL. [Concomitant]
     Active Substance: FLUOROURACIL
     Dosage: 920 MG, ONCE, CYCLE 3, STRENGTH: 1000 MG/20ML
     Route: 042
     Dates: start: 20170302, end: 20170302
  54. FLUOROURACIL. [Concomitant]
     Active Substance: FLUOROURACIL
     Dosage: 920 MG, ONCE, CYCLE 4, STRENGTH: 1000 MG/20ML
     Route: 042
     Dates: start: 20170323, end: 20170323
  55. DEXAMETHASONE. [Concomitant]
     Active Substance: DEXAMETHASONE
     Dosage: 4 MG, BID
     Route: 048
     Dates: start: 20170207, end: 20170209
  56. ALOXI [Concomitant]
     Active Substance: PALONOSETRON HYDROCHLORIDE
     Indication: PROPHYLAXIS OF NAUSEA AND VOMITING
     Dosage: 0.25 MG, ONCE
     Route: 042
     Dates: start: 20170116, end: 20170116
  57. ALOXI [Concomitant]
     Active Substance: PALONOSETRON HYDROCHLORIDE
     Dosage: 0.25 MG, ONCE
     Route: 042
     Dates: start: 20170323, end: 20170323
  58. ALOXI [Concomitant]
     Active Substance: PALONOSETRON HYDROCHLORIDE
     Dosage: 0.25 MG, ONCE
     Route: 042
     Dates: start: 20170504, end: 20170504
  59. NEUTROGIN [Concomitant]
     Active Substance: LENOGRASTIM
     Dosage: 250 MICROGRAM, ONCE
     Route: 058
     Dates: start: 20170511, end: 20170511
  60. ENDOXAN [Concomitant]
     Active Substance: CYCLOPHOSPHAMIDE
     Dosage: 915 MG, ONCE, CYCLE 2
     Route: 042
     Dates: start: 20170206, end: 20170206
  61. ENDOXAN [Concomitant]
     Active Substance: CYCLOPHOSPHAMIDE
     Dosage: 915 MG, ONCE, CYCLE 3
     Route: 042
     Dates: start: 20170227, end: 20170227
  62. EPIRUBICIN HYDROCHLORIDE. [Concomitant]
     Active Substance: EPIRUBICIN HYDROCHLORIDE
     Indication: CHEMOTHERAPY
     Dosage: 128 MG, ONCE, CYCLE 1, STRENGTH: 10 MG/10ML
     Route: 042
     Dates: start: 20170116, end: 20170116
  63. FLUOROURACIL. [Concomitant]
     Active Substance: FLUOROURACIL
     Dosage: 920 MG, ONCE, CYCLE 4, STRENGTH: 1000 MG/20ML
     Route: 042
     Dates: start: 20170326, end: 20170326
  64. DEXAMETHASONE. [Concomitant]
     Active Substance: DEXAMETHASONE
     Dosage: 6 MG, BID
     Route: 048
     Dates: start: 20170323, end: 20170323
  65. SANCUSO [Concomitant]
     Active Substance: GRANISETRON
     Dosage: 34.3 MG, ONCE, STRENGTH: 80.2X66.6 MM2
     Route: 062
     Dates: start: 20170205, end: 20170205
  66. ALOXI [Concomitant]
     Active Substance: PALONOSETRON HYDROCHLORIDE
     Dosage: 0.25 MG, ONCE
     Route: 042
     Dates: start: 20170227, end: 20170227
  67. STIMOL [Concomitant]
     Indication: PROPHYLAXIS
     Dosage: 1 MG, TID
     Route: 048
     Dates: start: 20170102
  68. CARDIOXANE [Concomitant]
     Active Substance: DEXRAZOXANE HYDROCHLORIDE
     Dosage: 1000 MG, ONCE
     Route: 042
     Dates: start: 20170227, end: 20170227
  69. NEUTROGIN [Concomitant]
     Active Substance: LENOGRASTIM
     Indication: PROPHYLAXIS
     Dosage: 250 MICROGRAM, ONCE
     Route: 058
     Dates: start: 20170126, end: 20170126
  70. EMEND (FOSAPREPITANT DIMEGLUMINE) [Suspect]
     Active Substance: FOSAPREPITANT DIMEGLUMINE
     Dosage: 150 MG, ONCE
     Route: 042
     Dates: start: 20170413, end: 20170413
  71. EMEND (FOSAPREPITANT DIMEGLUMINE) [Suspect]
     Active Substance: FOSAPREPITANT DIMEGLUMINE
     Dosage: 150 MG, ONCE
     Route: 042
     Dates: start: 20170504, end: 20170504
  72. EPIRUBICIN HYDROCHLORIDE. [Concomitant]
     Active Substance: EPIRUBICIN HYDROCHLORIDE
     Indication: CHEMOTHERAPY
     Dosage: 128 MG, ONCE, CYCLE 5, STRENGTH: 10 MG/5ML
     Route: 042
     Dates: start: 20170413, end: 20170413
  73. DEXAMETHASONE. [Concomitant]
     Active Substance: DEXAMETHASONE
     Dosage: 4 MG, BID
     Route: 048
     Dates: start: 20170505, end: 20170507
  74. SANCUSO [Concomitant]
     Active Substance: GRANISETRON
     Dosage: 34.3 MG, ONCE, STRENGTH: 80.2X66.6 MM2
     Route: 062
     Dates: start: 20170322, end: 20170322
  75. ALOXI [Concomitant]
     Active Substance: PALONOSETRON HYDROCHLORIDE
     Dosage: 0.25 MG, ONCE
     Route: 042
     Dates: start: 20170206, end: 20170206
  76. NASEA [Concomitant]
     Active Substance: RAMOSETRON HYDROCHLORIDE
     Dosage: 0.1 MG, ONCE
     Route: 048
     Dates: start: 20170210, end: 20170210
  77. ENTELON [Concomitant]
     Indication: PROPHYLAXIS
     Dosage: 150 MG, BID
     Route: 048
     Dates: start: 20170102
  78. CARDIOXANE [Concomitant]
     Active Substance: DEXRAZOXANE HYDROCHLORIDE
     Indication: CARDIOVASCULAR EVENT PROPHYLAXIS
     Dosage: 1000 MG, ONCE
     Route: 042
     Dates: start: 20170116, end: 20170116
  79. CARDIOXANE [Concomitant]
     Active Substance: DEXRAZOXANE HYDROCHLORIDE
     Dosage: 1000 MG, ONCE
     Route: 042
     Dates: start: 20170504, end: 20170504

REACTIONS (7)
  - Neutropenia [Recovered/Resolved]
  - Procedural pain [Recovered/Resolved]
  - Dyspnoea [Recovered/Resolved]
  - Neutropenia [Recovered/Resolved]
  - Neutropenia [Recovered/Resolved]
  - Neutropenia [Recovered/Resolved]
  - Procedural pain [Recovered/Resolved]

NARRATIVE: CASE EVENT DATE: 20170127
